FAERS Safety Report 22923237 (Version 3)
Quarter: 2023Q4

REPORT INFORMATION
  Report Type: Other
  Country: CA (occurrence: None)
  Receive Date: 20230908
  Receipt Date: 20231120
  Transmission Date: 20240109
  Serious: Yes (Other)
  Sender: FDA-Public Use
  Company Number: CA-ROCHE-3415809

PATIENT
  Sex: Female

DRUGS (1)
  1. VABYSMO [Suspect]
     Active Substance: FARICIMAB\FARICIMAB-SVOA
     Indication: Neovascular age-related macular degeneration
     Dosage: 6MG/0.05ML ;ONGOING: YES
     Route: 050
     Dates: start: 20230712

REACTIONS (3)
  - Neovascularisation [Unknown]
  - Eye inflammation [Unknown]
  - Eye discharge [Unknown]
